FAERS Safety Report 6837084-7 (Version None)
Quarter: 2010Q3

REPORT INFORMATION
  Report Type: 
  Country: None (occurrence: None)
  Receive Date: 20100713
  Receipt Date: 20070619
  Transmission Date: 20110219
  Serious: No
  Sender: FDA-Public Use
  Company Number: US-PFIZER INC-2007038138

PATIENT
  Sex: Female
  Weight: 107.95 kg

DRUGS (7)
  1. CHANTIX [Suspect]
     Indication: SMOKING CESSATION THERAPY
     Dates: start: 20070401, end: 20070401
  2. LORTAB [Concomitant]
  3. CARDIZEM [Concomitant]
  4. LISINOPRIL [Concomitant]
  5. BUMEX [Concomitant]
  6. POTASSIUM [Concomitant]
  7. WARFARIN SODIUM [Concomitant]
     Indication: DIABETES MELLITUS

REACTIONS (3)
  - DIZZINESS [None]
  - EYE INFECTION [None]
  - NAUSEA [None]
